FAERS Safety Report 9019392 (Version 1)
Quarter: 2013Q1

REPORT INFORMATION
  Report Type: Spontaneous
  Country: US (occurrence: US)
  Receive Date: 20130118
  Receipt Date: 20130118
  Transmission Date: 20140127
  Serious: Yes (Hospitalization)
  Sender: FDA-Public Use
  Company Number: US-SANOFI-AVENTIS-2012SA081919

PATIENT
  Age: 49 Year
  Sex: Male

DRUGS (2)
  1. LASIX [Suspect]
     Route: 065
     Dates: end: 20120628
  2. ZAROXOLYN [Suspect]
     Route: 065
     Dates: start: 20120620, end: 20120628

REACTIONS (1)
  - Renal failure acute [Recovered/Resolved]
